FAERS Safety Report 15676970 (Version 4)
Quarter: 2019Q4

REPORT INFORMATION
  Report Type: Report from Study
  Country: CL (occurrence: CL)
  Receive Date: 20181130
  Receipt Date: 20191017
  Transmission Date: 20200122
  Serious: Yes (Hospitalization, Other)
  Sender: FDA-Public Use
  Company Number: CL-BRISTOL-MYERS SQUIBB COMPANY-BMS-2018-110963

PATIENT
  Age: 45 Year
  Sex: Female

DRUGS (3)
  1. SUNITINIB [Suspect]
     Active Substance: SUNITINIB
     Indication: PRODUCT USED FOR UNKNOWN INDICATION
     Route: 065
  2. NIVOLUMAB [Suspect]
     Active Substance: NIVOLUMAB
     Indication: RENAL CANCER
     Dosage: 186 MG, Q2WK
     Route: 042
     Dates: start: 20170721, end: 20180125
  3. YERVOY [Suspect]
     Active Substance: IPILIMUMAB
     Indication: RENAL CANCER
     Dosage: 62 MG, Q2WK
     Route: 042
     Dates: start: 20170721, end: 20180125

REACTIONS (6)
  - Scan abnormal [Unknown]
  - Bone neoplasm [Unknown]
  - Thyroiditis [Unknown]
  - Intentional product use issue [Unknown]
  - Yellow skin [Unknown]
  - Oesophageal perforation [Unknown]

NARRATIVE: CASE EVENT DATE: 2018
